FAERS Safety Report 9832076 (Version 1)
Quarter: 2014Q1

REPORT INFORMATION
  Report Type: Spontaneous
  Country: BB (occurrence: BB)
  Receive Date: 20140121
  Receipt Date: 20140121
  Transmission Date: 20141002
  Serious: Yes (Death, Hospitalization)
  Sender: FDA-Public Use
  Company Number: BB-B.I. PHARMACEUTICALS,INC./RIDGEFIELD-2014-BI-02492CN

PATIENT
  Sex: 0

DRUGS (1)
  1. PRADAX [Suspect]

REACTIONS (1)
  - Haemorrhage intracranial [Fatal]
